FAERS Safety Report 6436466-5 (Version None)
Quarter: 2009Q4

REPORT INFORMATION
  Report Type: 
  Country: None (occurrence: None)
  Receive Date: 20091110
  Receipt Date: 20080205
  Transmission Date: 20100525
  Serious: No
  Sender: FDA-Public Use
  Company Number: AEUSA200800025

PATIENT
  Age: 46 Year
  Sex: Male

DRUGS (1)
  1. GAMUNEX [Suspect]
     Indication: IMMUNODEFICIENCY COMMON VARIABLE
     Dosage: 65 GM; QW; IV
     Route: 042
     Dates: start: 20060101

REACTIONS (5)
  - BLOOD IMMUNOGLOBULIN G DECREASED [None]
  - HAEMOGLOBIN DECREASED [None]
  - LYMPHOCYTE COUNT DECREASED [None]
  - SINUSITIS [None]
  - SKIN INFECTION [None]
